FAERS Safety Report 11232089 (Version 1)
Quarter: 2015Q3

REPORT INFORMATION
  Report Type: Spontaneous
  Country: CA (occurrence: CA)
  Receive Date: 20150701
  Receipt Date: 20150701
  Transmission Date: 20151125
  Serious: Yes (Other)
  Sender: FDA-Public Use
  Company Number: CA-PFIZER INC-2015214479

PATIENT
  Sex: Female

DRUGS (3)
  1. CHAMPIX [Suspect]
     Active Substance: VARENICLINE TARTRATE
     Indication: SMOKING CESSATION THERAPY
     Dosage: UNK
  2. CELEBREX [Suspect]
     Active Substance: CELECOXIB
     Indication: BACK PAIN
     Dosage: UNK
  3. EFFEXOR [Suspect]
     Active Substance: VENLAFAXINE HYDROCHLORIDE
     Dosage: UNK

REACTIONS (9)
  - Back pain [Not Recovered/Not Resolved]
  - Muscle spasms [Unknown]
  - Depressed mood [Not Recovered/Not Resolved]
  - Paraesthesia [Recovered/Resolved]
  - Cerebral disorder [Unknown]
  - Road traffic accident [Unknown]
  - Paralysis [Unknown]
  - Fear [Unknown]
  - Aphonia [Recovered/Resolved]
